FAERS Safety Report 13064422 (Version 1)
Quarter: 2016Q4

REPORT INFORMATION
  Report Type: Spontaneous
  Country: US (occurrence: US)
  Receive Date: 20161223
  Receipt Date: 20161223
  Transmission Date: 20170207
  Serious: Yes (Death)
  Sender: FDA-Public Use
  Company Number: None

PATIENT
  Age: 60 Year
  Sex: Female

DRUGS (1)
  1. IBRANCE [Suspect]
     Active Substance: PALBOCICLIB
     Indication: BREAST CANCER
     Dosage: 125MG QD X 21 DAY ORAL
     Route: 048
     Dates: start: 20161004, end: 20161201

REACTIONS (1)
  - Pneumonia [None]

NARRATIVE: CASE EVENT DATE: 20161211
